FAERS Safety Report 8514003-9 (Version None)
Quarter: 2012Q3

REPORT INFORMATION
  Report Type: 
  Country: None (occurrence: None)
  Receive Date: 20120705
  Receipt Date: 20120621
  Transmission Date: 20120928
  Serious: Yes (Other)
  Sender: FDA-Public Use
  Company Number: US-1192654

PATIENT
  Age: 45 Year
  Sex: Male
  Weight: 69.8539 kg

DRUGS (5)
  1. BSS [Suspect]
     Indication: INTRAOCULAR LENS IMPLANT
     Dosage: (INTRAOCULAR)
     Route: 031
     Dates: start: 20120515, end: 20120515
  2. VIGAMOX [Suspect]
     Indication: INTRAOCULAR LENS IMPLANT
     Dosage: (OPHTHALMIC)
     Route: 047
     Dates: start: 20120515, end: 20120515
  3. EPINEPHRINE [Concomitant]
  4. NEVANAC [Suspect]
     Indication: INTRAOCULAR LENS IMPLANT
     Dosage: (OPHTHALMIC)
     Route: 047
     Dates: start: 20120515, end: 20120515
  5. BETADINE [Suspect]
     Indication: INTRAOCULAR LENS IMPLANT
     Dosage: (INTRAOCULAR)
     Route: 031
     Dates: start: 20120515, end: 20120515

REACTIONS (2)
  - TOXIC ANTERIOR SEGMENT SYNDROME [None]
  - MEDICATION ERROR [None]
